FAERS Safety Report 16709411 (Version 1)
Quarter: 2019Q3

REPORT INFORMATION
  Report Type: Spontaneous
  Country: SE (occurrence: SE)
  Receive Date: 20190816
  Receipt Date: 20190816
  Transmission Date: 20191004
  Serious: Yes (Hospitalization)
  Sender: FDA-Public Use
  Company Number: SE-BIOGEN-2019BI00775529

PATIENT
  Sex: Female

DRUGS (1)
  1. TYSABRI [Suspect]
     Active Substance: NATALIZUMAB
     Indication: MULTIPLE SCLEROSIS
     Route: 065
     Dates: start: 2009

REACTIONS (5)
  - Constipation [Unknown]
  - Underweight [Unknown]
  - Decreased appetite [Unknown]
  - Cognitive disorder [Unknown]
  - Blood potassium abnormal [Unknown]

NARRATIVE: CASE EVENT DATE: 2013
